FAERS Safety Report 7018672-4 (Version None)
Quarter: 2010Q3

REPORT INFORMATION
  Report Type: 
  Country: None (occurrence: None)
  Receive Date: 20100924
  Receipt Date: 20100908
  Transmission Date: 20110219
  Serious: Yes (Other)
  Sender: FDA-Public Use
  Company Number: DSA_43914_2010

PATIENT
  Age: 82 Year
  Sex: Female

DRUGS (8)
  1. ENALAPRIL MALEATE [Suspect]
     Indication: PRODUCT USED FOR UNKNOWN INDICATION
     Dosage: 5 MG QD ORAL
     Route: 048
     Dates: end: 20091201
  2. TRAMADOL HCL [Suspect]
     Indication: PRODUCT USED FOR UNKNOWN INDICATION
     Dosage: DF
  3. LEVOTHYROXINE SODIUM [Concomitant]
  4. ALVEDON [Concomitant]
  5. WARAN [Concomitant]
  6. DIGOXIN [Concomitant]
  7. FURIX [Concomitant]
  8. SELOKENZOC [Concomitant]

REACTIONS (7)
  - ANAPHYLACTIC REACTION [None]
  - ECZEMA [None]
  - HYPERSENSITIVITY [None]
  - PURPURA [None]
  - RASH [None]
  - SKIN EXFOLIATION [None]
  - URTICARIA [None]
